FAERS Safety Report 25805823 (Version 1)
Quarter: 2025Q3

REPORT INFORMATION
  Report Type: Spontaneous
  Country: US (occurrence: US)
  Receive Date: 20250916
  Receipt Date: 20250916
  Transmission Date: 20251020
  Serious: No
  Sender: AMGEN
  Company Number: US-AMGEN-USASP2025180658

PATIENT
  Age: 77 Year
  Sex: Female

DRUGS (1)
  1. AMJEVITA [Suspect]
     Active Substance: ADALIMUMAB-ATTO
     Indication: Product used for unknown indication
     Route: 065

REACTIONS (4)
  - Device difficult to use [Unknown]
  - Product communication issue [Unknown]
  - Incorrect dose administered by device [Unknown]
  - Brain fog [Unknown]

NARRATIVE: CASE EVENT DATE: 20250828
